FAERS Safety Report 24788565 (Version 1)
Quarter: 2024Q4

REPORT INFORMATION
  Report Type: Spontaneous
  Country: FR (occurrence: FR)
  Receive Date: 20241230
  Receipt Date: 20241230
  Transmission Date: 20250114
  Serious: Yes (Hospitalization)
  Sender: ACCORD
  Company Number: None

PATIENT
  Age: 49 Year
  Sex: Male
  Weight: 118 kg

DRUGS (10)
  1. ETOPOSIDE [Suspect]
     Active Substance: ETOPOSIDE
     Indication: Testis cancer recurrent
     Dosage: D1 TO D5 THEN D8 AND D15.
     Dates: start: 20241105
  2. BLEOMYCIN [Concomitant]
     Active Substance: BLEOMYCIN SULFATE
  3. CISPLATIN [Concomitant]
     Active Substance: CISPLATIN
  4. SERETIDE [Concomitant]
     Active Substance: FLUTICASONE PROPIONATE\SALMETEROL XINAFOATE
  5. VENTOLIN [Concomitant]
     Active Substance: ALBUTEROL SULFATE
  6. SOLUPRED [Concomitant]
  7. EMEND [Concomitant]
     Active Substance: APREPITANT
  8. ONDANSETRON [Concomitant]
     Active Substance: ONDANSETRON
  9. PRIMPERAN [Concomitant]
     Active Substance: METOCLOPRAMIDE HYDROCHLORIDE
  10. FILGRASTIM [Concomitant]
     Active Substance: FILGRASTIM

REACTIONS (1)
  - Asthmatic crisis [Recovered/Resolved]

NARRATIVE: CASE EVENT DATE: 20241105
